FAERS Safety Report 19766684 (Version 2)
Quarter: 2022Q4

REPORT INFORMATION
  Report Type: Report from Study
  Country: FR (occurrence: FR)
  Receive Date: 20210830
  Receipt Date: 20221128
  Transmission Date: 20230112
  Serious: Yes (Hospitalization, Other)
  Sender: FDA-Public Use
  Company Number: FR-TAKEDA-2021TUS051523

PATIENT
  Sex: Female

DRUGS (34)
  1. TEDUGLUTIDE [Suspect]
     Active Substance: TEDUGLUTIDE
     Indication: Short-bowel syndrome
     Dosage: UNK
     Route: 042
  2. TEDUGLUTIDE [Suspect]
     Active Substance: TEDUGLUTIDE
     Indication: Short-bowel syndrome
     Dosage: UNK
     Route: 042
  3. TEDUGLUTIDE [Suspect]
     Active Substance: TEDUGLUTIDE
     Indication: Short-bowel syndrome
     Dosage: UNK
     Route: 042
  4. TEDUGLUTIDE [Suspect]
     Active Substance: TEDUGLUTIDE
     Indication: Short-bowel syndrome
     Dosage: UNK
     Route: 042
  5. EUPANTOL [Concomitant]
     Active Substance: PANTOPRAZOLE SODIUM
     Indication: Prophylaxis
     Dosage: 40 MILLIGRAM, QD
     Route: 048
  6. MIRTAZAPINE [Concomitant]
     Active Substance: MIRTAZAPINE
     Indication: Depression
     Dosage: 15 MILLIGRAM, QD
     Route: 048
  7. MIRTAZAPINE [Concomitant]
     Active Substance: MIRTAZAPINE
     Dosage: 15 MILLIGRAM, TID
     Route: 048
     Dates: start: 20220629
  8. ACETAMINOPHEN [Concomitant]
     Active Substance: ACETAMINOPHEN
     Indication: Headache
     Dosage: 1000 MILLIGRAM
     Route: 048
  9. BROMAZEPAM [Concomitant]
     Active Substance: BROMAZEPAM
     Indication: Depression
     Dosage: 0.25 INTERNATIONAL UNIT, QD
     Route: 048
  10. Temesta [Concomitant]
     Indication: Depression
     Dosage: 1 INTERNATIONAL UNIT, QD
     Route: 048
  11. URSODIOL [Concomitant]
     Active Substance: URSODIOL
     Indication: Cholecystectomy
     Dosage: 250 MILLIGRAM, BID
     Route: 048
  12. LYRICA [Concomitant]
     Active Substance: PREGABALIN
     Indication: Depression
     Dosage: 1 INTERNATIONAL UNIT, BID
     Route: 048
     Dates: end: 2017
  13. LYRICA [Concomitant]
     Active Substance: PREGABALIN
     Dosage: 50 MILLIGRAM, TID
     Route: 048
     Dates: start: 2018, end: 2021
  14. TERIPARATIDE [Concomitant]
     Active Substance: TERIPARATIDE
     Indication: Osteoporosis
     Dosage: 1 INTERNATIONAL UNIT, QD
     Route: 048
  15. Previscan [Concomitant]
     Indication: Thrombosis prophylaxis
     Dosage: 20 MILLIGRAM, QD
     Route: 048
  16. METRONIDAZOLE [Concomitant]
     Active Substance: METRONIDAZOLE
     Indication: Inflammation
     Dosage: UNK UNK, QD
     Route: 065
     Dates: start: 20170915
  17. FLUCONAZOLE [Concomitant]
     Active Substance: FLUCONAZOLE
     Indication: Inflammation
     Dosage: UNK UNK, QD
     Route: 065
     Dates: start: 20170915
  18. CEPHALOSPORIN C [Concomitant]
     Active Substance: CEPHALOSPORIN C
     Indication: Inflammation
     Dosage: UNK UNK, QD
     Route: 065
     Dates: start: 20170915
  19. FENTANYL [Concomitant]
     Active Substance: FENTANYL
     Indication: Back pain
     Dosage: 100 MICROGRAM
     Route: 062
     Dates: start: 201904, end: 20190619
  20. FENTANYL [Concomitant]
     Active Substance: FENTANYL
     Indication: Rib fracture
     Dosage: 50 MICROGRAM, QD
     Route: 062
     Dates: start: 201904, end: 20190619
  21. FENTANYL [Concomitant]
     Active Substance: FENTANYL
     Dosage: 175 MICROGRAM, QD
     Route: 062
     Dates: start: 20190620, end: 20190622
  22. FENTANYL [Concomitant]
     Active Substance: FENTANYL
     Dosage: 175 MICROGRAM, QD
     Route: 062
     Dates: start: 20190623, end: 20210305
  23. FENTANYL [Concomitant]
     Active Substance: FENTANYL
     Dosage: 200 MICROGRAM, QD
     Route: 062
     Dates: start: 20210305
  24. KETAMINE [Concomitant]
     Active Substance: KETAMINE
     Indication: Back pain
     Dosage: 30 MILLIGRAM, QD
     Route: 042
     Dates: start: 20190618, end: 20190619
  25. Covid-19 vaccine [Concomitant]
     Indication: COVID-19 immunisation
     Dosage: 1 INTERNATIONAL UNIT, SINGLE
     Route: 030
     Dates: start: 202104, end: 202104
  26. Covid-19 vaccine [Concomitant]
     Dosage: 1 INTERNATIONAL UNIT, SINGLE
     Route: 030
     Dates: start: 202103, end: 202103
  27. DOLIPRANE [Concomitant]
     Active Substance: ACETAMINOPHEN
     Indication: Pyrexia
     Dosage: 500 MILLIGRAM, BID
     Route: 048
     Dates: start: 20220629
  28. TRIMEBUTINE [Concomitant]
     Active Substance: TRIMEBUTINE
     Indication: Abdominal pain
     Dosage: 100 MILLIGRAM, TID
     Route: 048
     Dates: start: 20220629
  29. LANSOPRAZOLE [Concomitant]
     Active Substance: LANSOPRAZOLE
     Dosage: 30 MILLIGRAM, QD
     Route: 048
     Dates: start: 20220629
  30. RACECADOTRIL [Concomitant]
     Active Substance: RACECADOTRIL
     Dosage: 100 MILLIGRAM, TID
     Route: 048
     Dates: start: 20220629
  31. LOPERAMIDE [Concomitant]
     Active Substance: LOPERAMIDE
     Dosage: 2 MILLIGRAM, TID
     Route: 048
     Dates: start: 20220629
  32. SODIUM ALGINATE\SODIUM BICARBONATE [Concomitant]
     Active Substance: SODIUM ALGINATE\SODIUM BICARBONATE
     Dosage: 500 MILLIGRAM, QD
     Route: 048
     Dates: start: 20220629
  33. VITAMIN B12 [Concomitant]
     Active Substance: CYANOCOBALAMIN
     Dosage: 1 DOSAGE FORM, QD
     Route: 048
     Dates: start: 20220606
  34. VITAMIN K 2 [Concomitant]
     Dosage: 1 DOSAGE FORM, 1/WEEK
     Route: 048
     Dates: start: 20220606

REACTIONS (1)
  - Hemiplegia [Recovered/Resolved]

NARRATIVE: CASE EVENT DATE: 20200313
